FAERS Safety Report 13563146 (Version 1)
Quarter: 2017Q2

REPORT INFORMATION
  Report Type: Spontaneous
  Country: US (occurrence: US)
  Receive Date: 20170518
  Receipt Date: 20170518
  Transmission Date: 20170830
  Serious: Yes (Hospitalization)
  Sender: FDA-Public Use
  Company Number: None

PATIENT
  Age: 61 Year
  Sex: Female

DRUGS (1)
  1. IBRANCE [Suspect]
     Active Substance: PALBOCICLIB
     Indication: NEOPLASM MALIGNANT
     Dosage: 1 CAPSULE (125MG) DAILY FOR 21 DAYS BY MOUTH
     Route: 048
     Dates: start: 20170428

REACTIONS (2)
  - Large intestine perforation [None]
  - Therapy cessation [None]

NARRATIVE: CASE EVENT DATE: 20170508
